FAERS Safety Report 11885755 (Version 3)
Quarter: 2016Q2

REPORT INFORMATION
  Report Type: Spontaneous
  Country: JP (occurrence: JP)
  Receive Date: 20160104
  Receipt Date: 20160412
  Transmission Date: 20160902
  Serious: Yes (Hospitalization, Other)
  Sender: FDA-Public Use
  Company Number: JP-PFIZER INC-2015476529

PATIENT
  Age: 71 Year
  Sex: Female

DRUGS (1)
  1. AMIODARONE HCL [Suspect]
     Active Substance: AMIODARONE HYDROCHLORIDE
     Dosage: UNK
     Route: 065

REACTIONS (4)
  - Liver disorder [Recovering/Resolving]
  - Inflammatory pseudotumour [Recovering/Resolving]
  - Atrioventricular block complete [Recovering/Resolving]
  - Electrocardiogram QT prolonged [Recovering/Resolving]
